FAERS Safety Report 20406955 (Version 2)
Quarter: 2022Q3

REPORT INFORMATION
  Report Type: Spontaneous
  Country: JP (occurrence: JP)
  Receive Date: 20220131
  Receipt Date: 20220706
  Transmission Date: 20221027
  Serious: No
  Sender: FDA-Public Use
  Company Number: JP-GLAXOSMITHKLINE-JP2022JPN010545

PATIENT

DRUGS (9)
  1. SOTROVIMAB [Suspect]
     Active Substance: SOTROVIMAB
     Indication: COVID-19
     Dosage: 500 MG/DAY
     Route: 042
     Dates: start: 20220111
  2. CALONAL [Suspect]
     Active Substance: ACETAMINOPHEN
     Indication: Pyrexia
     Dosage: 500 MG, PRN
     Route: 048
     Dates: start: 20220111
  3. CALONAL [Suspect]
     Active Substance: ACETAMINOPHEN
     Indication: COVID-19
  4. DIMEMORFAN [Suspect]
     Active Substance: DIMEMORFAN
     Dosage: 30 MG/DAY
     Route: 048
     Dates: start: 20220111
  5. CARBOCYSTEINE [Suspect]
     Active Substance: CARBOCYSTEINE
     Dosage: 1500 MG/DAY
     Route: 048
     Dates: start: 20220111
  6. MAGNESIUM OXIDE [Suspect]
     Active Substance: MAGNESIUM OXIDE
     Dosage: 750 MG/DAY
     Route: 048
     Dates: start: 20220111
  7. FERRIC CITRATE ANHYDROUS [Suspect]
     Active Substance: FERRIC CITRATE ANHYDROUS
     Indication: Iron deficiency anaemia
     Dosage: 500 MG/DAY
     Route: 048
     Dates: start: 20220120
  8. AZITHROMYCIN DIHYDRATE [Suspect]
     Active Substance: AZITHROMYCIN DIHYDRATE
     Indication: Chlamydial cervicitis
     Dosage: 1000 MG/DAY
     Route: 048
     Dates: start: 20220217
  9. HEPARIN CALCIUM [Suspect]
     Active Substance: HEPARIN CALCIUM
     Indication: Thrombosis prophylaxis
     Dosage: 10000 U/DAY
     Route: 058
     Dates: start: 20220111

REACTIONS (1)
  - Exposure during pregnancy [Unknown]
